FAERS Safety Report 8518585-2 (Version None)
Quarter: 2012Q3

REPORT INFORMATION
  Report Type: 
  Country: None (occurrence: None)
  Receive Date: 20120718
  Receipt Date: 20120531
  Transmission Date: 20120928
  Serious: No
  Sender: FDA-Public Use
  Company Number: US-BRISTOL-MYERS SQUIBB COMPANY-16654857

PATIENT
  Age: 72 Year
  Sex: Male

DRUGS (2)
  1. COUMADIN [Suspect]
  2. ALLEGRA [Suspect]
     Indication: SEASONAL ALLERGY
     Dosage: FILM COATED TABS
     Route: 048
     Dates: start: 20120501

REACTIONS (1)
  - COAGULOPATHY [None]
